FAERS Safety Report 9464901 (Version 6)
Quarter: 2014Q2

REPORT INFORMATION
  Report Type: Spontaneous
  Country: CA (occurrence: CA)
  Receive Date: 20130819
  Receipt Date: 20140402
  Transmission Date: 20141212
  Serious: Yes (Hospitalization, Other)
  Sender: FDA-Public Use
  Company Number: CA-ROCHE-1262703

PATIENT
  Age: 59 Year
  Sex: Female

DRUGS (14)
  1. XOLAIR [Suspect]
     Indication: ASTHMA
     Route: 058
     Dates: start: 20130612
  2. XOLAIR [Suspect]
     Route: 058
     Dates: start: 20130712
  3. XOLAIR [Suspect]
     Route: 058
     Dates: start: 20130809
  4. XOLAIR [Suspect]
     Route: 058
     Dates: start: 20130906
  5. XOLAIR [Suspect]
     Route: 058
     Dates: start: 20131101, end: 20131101
  6. HYDROCHLOROTHIAZIDE [Concomitant]
  7. SYMBICORT [Concomitant]
  8. SPIRIVA [Concomitant]
  9. ALVESCO [Concomitant]
  10. VENTOLINE [Concomitant]
  11. ATROVENT [Concomitant]
  12. PREDNISONE [Concomitant]
     Route: 065
  13. PREMARIN [Concomitant]
  14. SPIRONOLACTONE [Concomitant]

REACTIONS (13)
  - Asthma [Unknown]
  - Chest pain [Unknown]
  - Nausea [Unknown]
  - Vomiting [Unknown]
  - Dehydration [Unknown]
  - Heart rate irregular [Unknown]
  - Blood pressure systolic increased [Recovered/Resolved]
  - Respiratory rate increased [Not Recovered/Not Resolved]
  - Feeling abnormal [Unknown]
  - Obstructive airways disorder [Unknown]
  - Dyspnoea [Unknown]
  - Heart rate increased [Unknown]
  - Drug ineffective [Unknown]
